FAERS Safety Report 6585581-4 (Version None)
Quarter: 2010Q1

REPORT INFORMATION
  Report Type: 
  Country: None (occurrence: None)
  Receive Date: 20100201
  Receipt Date: 20091006
  Transmission Date: 20100710
  Serious: Yes (Other)
  Sender: FDA-Public Use
  Company Number: 8053068

PATIENT
  Sex: Female
  Weight: 56.6 kg

DRUGS (3)
  1. KEPPRA [Suspect]
     Indication: COMPLEX PARTIAL SEIZURES
     Dosage: 500 MG BID ORAL
     Route: 048
     Dates: start: 20070101, end: 20081201
  2. LEVETIRACETAM [Suspect]
     Indication: COMPLEX PARTIAL SEIZURES
     Dosage: 500 MG BID ORAL
     Route: 048
     Dates: start: 20081201
  3. KARIVA [Concomitant]

REACTIONS (1)
  - CONVULSION [None]
